FAERS Safety Report 7047760-1 (Version None)
Quarter: 2010Q4

REPORT INFORMATION
  Report Type: 
  Country: None (occurrence: None)
  Receive Date: 20101015
  Receipt Date: 20101005
  Transmission Date: 20110411
  Serious: Yes (Other)
  Sender: FDA-Public Use
  Company Number: US-PFIZER INC-2010126783

PATIENT
  Sex: Female

DRUGS (7)
  1. FLAGYL [Suspect]
     Indication: COLITIS ISCHAEMIC
     Dosage: 500 MG, 4X/DAY
     Dates: start: 20100901
  2. CIPROFLOXACIN [Concomitant]
     Indication: INFECTION
     Dosage: 500 MG, 2X/DAY
  3. TRILEPTAL [Concomitant]
     Indication: TRIGEMINAL NEURALGIA
  4. IRON [Concomitant]
     Indication: ANAEMIA
     Dosage: UNK
  5. ZOCOR [Concomitant]
     Indication: CEREBROVASCULAR ACCIDENT
     Dosage: UNK
  6. MULTI-VITAMINS [Concomitant]
     Dosage: UNK
  7. ASCORBIC ACID [Concomitant]
     Dosage: UNK

REACTIONS (3)
  - ABDOMINAL DISCOMFORT [None]
  - BLOOD GLUCOSE INCREASED [None]
  - HYPOTENSION [None]
